FAERS Safety Report 24434932 (Version 1)
Quarter: 2024Q4

REPORT INFORMATION
  Report Type: Spontaneous
  Country: US (occurrence: US)
  Receive Date: 20241014
  Receipt Date: 20241014
  Transmission Date: 20250114
  Serious: No
  Sender: MERCK
  Company Number: US-009507513-2410USA001733

PATIENT
  Sex: Female

DRUGS (1)
  1. VERQUVO [Suspect]
     Active Substance: VERICIGUAT
     Route: 048

REACTIONS (1)
  - Gastrooesophageal reflux disease [Unknown]
